FAERS Safety Report 15480694 (Version 5)
Quarter: 2021Q1

REPORT INFORMATION
  Report Type: Spontaneous
  Country: FR (occurrence: FR)
  Receive Date: 20181010
  Receipt Date: 20210222
  Transmission Date: 20210419
  Serious: Yes (Other)
  Sender: FDA-Public Use
  Company Number: PHHY2018FR114942

PATIENT
  Age: 63 Year
  Sex: Female

DRUGS (12)
  1. CARBOPLATIN. [Suspect]
     Active Substance: CARBOPLATIN
     Indication: OVARIAN CANCER RECURRENT
     Dosage: UNK (TARGET AREA UNDER THE CURVE [AUC]?6)
     Route: 065
  2. BEVACIZUMAB. [Suspect]
     Active Substance: BEVACIZUMAB
     Indication: OVARIAN CANCER RECURRENT
     Dosage: UNK
     Route: 065
  3. TRABECTEDIN [Concomitant]
     Active Substance: TRABECTEDIN
     Indication: PALLIATIVE CARE
     Dosage: UNK
     Route: 065
     Dates: start: 201405
  4. PEGYLATED LIPOSOMAL DOXORUBICIN [Concomitant]
     Active Substance: DOXORUBICIN
     Indication: PRODUCT USED FOR UNKNOWN INDICATION
     Dosage: UNK
     Route: 065
  5. G?CSF [Concomitant]
     Active Substance: GRANULOCYTE COLONY-STIMULATING FACTOR NOS
     Indication: PRODUCT USED FOR UNKNOWN INDICATION
     Dosage: UNK
     Route: 065
  6. OLAPARIB. [Concomitant]
     Active Substance: OLAPARIB
     Indication: PRODUCT USED FOR UNKNOWN INDICATION
     Dosage: UNK
     Route: 065
  7. DOXORUBICIN [Concomitant]
     Active Substance: DOXORUBICIN
     Indication: PALLIATIVE CARE
     Dosage: UNK
     Route: 065
     Dates: start: 201405
  8. GEMCITABINE. [Concomitant]
     Active Substance: GEMCITABINE
     Indication: OVARIAN CANCER RECURRENT
     Dosage: 1 DF, UNK
     Route: 065
     Dates: start: 2015
  9. FILGRASTIM [Suspect]
     Active Substance: FILGRASTIM
     Indication: PALLIATIVE CARE
     Dosage: UNK
     Route: 065
     Dates: start: 201406, end: 201502
  10. CARBOPLATIN. [Suspect]
     Active Substance: CARBOPLATIN
     Dosage: 1 DF, UNK (1UG\L)
     Route: 065
  11. PACLITAXEL. [Suspect]
     Active Substance: PACLITAXEL
     Indication: OVARIAN CANCER RECURRENT
     Dosage: 175 MG/M2, UNK
     Route: 065
  12. RED BLOOD CELLS [Concomitant]
     Active Substance: HUMAN RED BLOOD CELL
     Indication: PRODUCT USED FOR UNKNOWN INDICATION
     Dosage: UNK
     Route: 065

REACTIONS (7)
  - Pneumonia [Unknown]
  - Neutropenia [Unknown]
  - Malignant neoplasm progression [Unknown]
  - Asthenia [Unknown]
  - Nausea [Unknown]
  - Neuropathy peripheral [Unknown]
  - Alopecia [Unknown]

NARRATIVE: CASE EVENT DATE: 2015
